FAERS Safety Report 7326648-2 (Version None)
Quarter: 2011Q1

REPORT INFORMATION
  Report Type: 
  Country: None (occurrence: None)
  Receive Date: 20110302
  Receipt Date: 20110216
  Transmission Date: 20110831
  Serious: Yes (Other)
  Sender: FDA-Public Use
  Company Number: JP-ACTELION-A-CH2011-45226

PATIENT
  Age: 14 Year
  Sex: Female

DRUGS (4)
  1. TRACLEER [Suspect]
     Indication: PULMONARY ARTERIAL HYPERTENSION
     Dosage: UNK , UNK
     Route: 048
  2. BERAPROST [Concomitant]
  3. SILDENAFIL [Concomitant]
     Dosage: UNK , UNK
  4. OXYGEN [Concomitant]

REACTIONS (5)
  - SYSTEMIC-PULMONARY ARTERY SHUNT [None]
  - EXERCISE TOLERANCE DECREASED [None]
  - CARDIOMEGALY [None]
  - CARDIAC FAILURE [None]
  - DIARRHOEA [None]
